FAERS Safety Report 4522133-1 (Version None)
Quarter: 2004Q4

REPORT INFORMATION
  Report Type: 
  Country: None (occurrence: None)
  Receive Date: 20041207
  Receipt Date: 20041118
  Transmission Date: 20050328
  Serious: Yes (Hospitalization, Disabling, Other)
  Sender: FDA-Public Use
  Company Number: USA031049961

PATIENT
  Age: 41 Year
  Sex: Male
  Weight: 74 kg

DRUGS (15)
  1. HUMULIN L [Suspect]
     Indication: DIABETES MELLITUS
     Dosage: 10 U/2 DAY
     Dates: start: 19920101
  2. HUMALOG [Suspect]
     Indication: DIABETES MELLITUS
     Dates: start: 19970101
  3. HUMULIN R [Suspect]
     Indication: DIABETES MELLITUS
     Dates: start: 19920101, end: 19970101
  4. HUMULIN U [Suspect]
     Indication: DIABETES MELLITUS
     Dates: start: 19940610
  5. ILETIN-BEEF/PORK REGULAR INSULIN(INSULIN, ANIMAL) [Suspect]
     Indication: DIABETES MELLITUS
     Dates: start: 19960101
  6. HUMULIN N [Suspect]
     Indication: DIABETES MELLITUS
     Dosage: 14 U DAY
     Dates: start: 20040503
  7. NPH ILETIN I (BEEF-PORK) [Suspect]
     Indication: DIABETES MELLITUS
     Dates: start: 19660101
  8. ULTRA-LENTE ILETIN INSULIN [Suspect]
     Indication: DIABETES MELLITUS
     Dates: start: 19681209
  9. ILETIN-BEEF/PORK SEMILENTE  INSULIN(INSULIN, ANIMAL [Suspect]
     Indication: DIABETES MELLITUS
     Dates: start: 19681209
  10. LENTE ILETIN (BEEF-PORK) INSULIN ZINC [Suspect]
     Indication: DIABETES MELLITUS
  11. INSULIN-INSULIN -ANIMAL (INSUL [Suspect]
     Indication: DIABETES MELLITUS
  12. ASPIRIN [Concomitant]
  13. CENTRUM [Concomitant]
  14. PREVACID [Concomitant]
  15. VITAMIN E [Concomitant]

REACTIONS (21)
  - ABNORMAL BEHAVIOUR [None]
  - AMNESIA [None]
  - ANIMAL BITE [None]
  - BLOOD GLUCOSE INCREASED [None]
  - BUNDLE BRANCH BLOCK RIGHT [None]
  - CONVULSION [None]
  - DIABETES MELLITUS INADEQUATE CONTROL [None]
  - DIARRHOEA [None]
  - DIZZINESS [None]
  - GLYCOSYLATED HAEMOGLOBIN INCREASED [None]
  - HYPERHIDROSIS [None]
  - HYPOGLYCAEMIA [None]
  - HYPOKALAEMIA [None]
  - IMPAIRED DRIVING ABILITY [None]
  - IMPAIRED GASTRIC EMPTYING [None]
  - IMPAIRED WORK ABILITY [None]
  - LIBIDO DECREASED [None]
  - MUSCULOSKELETAL DISCOMFORT [None]
  - SOMOGYI PHENOMENON [None]
  - THINKING ABNORMAL [None]
  - TREMOR [None]
